FAERS Safety Report 8341203-3 (Version None)
Quarter: 2012Q2

REPORT INFORMATION
  Report Type: 
  Country: None (occurrence: None)
  Receive Date: 20120507
  Receipt Date: 20120424
  Transmission Date: 20120825
  Serious: Yes (Other)
  Sender: FDA-Public Use
  Company Number: JP-JNJFOC-20091005888

PATIENT
  Sex: Female
  Weight: 45 kg

DRUGS (102)
  1. DOXORUBICIN HCL [Suspect]
     Dosage: CYCLE 2
     Route: 042
     Dates: start: 20090810, end: 20090810
  2. PREDNISOLONE [Concomitant]
     Route: 048
     Dates: start: 20100701, end: 20100704
  3. PREDNISOLONE [Concomitant]
     Route: 048
     Dates: start: 20100421, end: 20100424
  4. PREDNISOLONE [Concomitant]
     Route: 048
     Dates: start: 20091212, end: 20091212
  5. PREDNISOLONE [Concomitant]
     Route: 048
     Dates: start: 20090810, end: 20090813
  6. PREDNISOLONE [Concomitant]
     Route: 048
     Dates: start: 20091028, end: 20091028
  7. GENTAMICIN SULFATE [Concomitant]
     Indication: PRODUCT USED FOR UNKNOWN INDICATION
     Route: 061
     Dates: start: 20091106
  8. FLOMOX [Concomitant]
     Route: 048
     Dates: start: 20100712, end: 20100714
  9. FLUMARIN [Concomitant]
     Route: 042
     Dates: start: 20100714, end: 20100719
  10. HALOPERIDOL [Concomitant]
     Route: 030
     Dates: start: 20110208
  11. NEUTROGIN [Concomitant]
     Route: 058
     Dates: start: 20100720, end: 20100722
  12. NEUTROGIN [Concomitant]
     Route: 058
     Dates: start: 20100618, end: 20100619
  13. NEUTROGIN [Concomitant]
     Route: 058
     Dates: start: 20091002, end: 20091003
  14. PYDOXAL [Concomitant]
     Indication: PROPHYLAXIS
     Route: 048
     Dates: start: 20090710, end: 20090903
  15. PREDNISOLONE [Concomitant]
     Route: 048
     Dates: start: 20100605, end: 20100606
  16. PREDNISOLONE [Concomitant]
     Route: 048
     Dates: start: 20100425, end: 20100426
  17. PREDNISOLONE [Concomitant]
     Route: 048
     Dates: start: 20090715, end: 20090715
  18. PREDNISOLONE [Concomitant]
     Route: 048
     Dates: start: 20091027, end: 20091027
  19. DEPAS [Concomitant]
     Route: 048
     Dates: start: 20101119
  20. NEUTROGIN [Concomitant]
     Indication: PROPHYLAXIS
     Route: 058
     Dates: start: 20100830, end: 20100831
  21. NEUTROGIN [Concomitant]
     Route: 058
     Dates: start: 20101001, end: 20101002
  22. DOXORUBICIN HCL [Suspect]
     Dosage: CYCLE 5
     Route: 042
     Dates: start: 20091208, end: 20091208
  23. DOXORUBICIN HCL [Suspect]
     Dosage: CYCLE 11
     Route: 042
     Dates: start: 20100812, end: 20100812
  24. RABEPRAZOLE SODIUM [Concomitant]
     Indication: PRODUCT USED FOR UNKNOWN INDICATION
     Route: 048
  25. PREDNISOLONE [Concomitant]
     Indication: PROPHYLAXIS
     Route: 048
     Dates: start: 20100812, end: 20100815
  26. PREDNISOLONE [Concomitant]
     Route: 048
     Dates: start: 20101025, end: 20101026
  27. PREDNISOLONE [Concomitant]
     Route: 048
     Dates: start: 20100909, end: 20100912
  28. PREDNISOLONE [Concomitant]
     Route: 048
     Dates: start: 20091213, end: 20091213
  29. FLUMARIN [Concomitant]
     Route: 042
     Dates: start: 20100101, end: 20100101
  30. GAMOFA [Concomitant]
     Route: 042
     Dates: start: 20100714, end: 20100719
  31. LOXOPROFEN [Concomitant]
     Route: 048
     Dates: start: 20101215
  32. MAGMITT [Concomitant]
     Route: 048
     Dates: start: 20110126
  33. PENTAZOCINE LACTATE [Concomitant]
     Route: 065
     Dates: start: 20101223
  34. METHYLPREDNISOLONE SODIUM SUCCINATE [Concomitant]
     Indication: PROPHYLAXIS
     Route: 042
     Dates: start: 20100928
  35. MAXIPIME [Concomitant]
     Route: 042
     Dates: start: 20101108, end: 20101114
  36. NEUTROGIN [Concomitant]
     Route: 058
     Dates: start: 20100409, end: 20100410
  37. DOXORUBICIN HCL [Suspect]
     Dosage: CYCLE 13
     Route: 042
     Dates: start: 20101021, end: 20101021
  38. DOXORUBICIN HCL [Suspect]
     Dosage: CYCLE 10
     Route: 042
     Dates: start: 20100701, end: 20100701
  39. DOXORUBICIN HCL [Suspect]
     Dosage: CYCLE 12
     Route: 042
     Dates: start: 20100909, end: 20100909
  40. PREDNISOLONE [Concomitant]
     Route: 048
     Dates: start: 20100705, end: 20100706
  41. PREDNISOLONE [Concomitant]
     Route: 048
     Dates: start: 20100327, end: 20100328
  42. PREDNISOLONE [Concomitant]
     Route: 048
     Dates: start: 20090710, end: 20090713
  43. PREDNISOLONE [Concomitant]
     Route: 048
     Dates: start: 20091208, end: 20091211
  44. HUSTAZOL [Concomitant]
     Indication: PRODUCT USED FOR UNKNOWN INDICATION
     Route: 048
     Dates: start: 20090810, end: 20090814
  45. LECICARBON [Concomitant]
     Route: 054
     Dates: start: 20100930
  46. FUNGIZONE [Concomitant]
     Route: 048
     Dates: start: 20101122
  47. CYTOTEC [Concomitant]
     Indication: PROPHYLAXIS
     Route: 048
     Dates: start: 20101215
  48. BETAMETHASONE [Concomitant]
     Route: 048
     Dates: start: 20101108, end: 20101112
  49. FAMOTIDINE [Concomitant]
     Route: 048
     Dates: start: 20101224
  50. ZOLPIDEM [Concomitant]
     Route: 048
     Dates: start: 20101227
  51. NEUTROGIN [Concomitant]
     Route: 058
     Dates: start: 20090727, end: 20090729
  52. NEUTROGIN [Concomitant]
     Route: 058
     Dates: start: 20091225, end: 20091226
  53. DOXORUBICIN HCL [Suspect]
     Dosage: CYCLE 6
     Route: 042
     Dates: start: 20100129, end: 20100129
  54. DOXORUBICIN HCL [Suspect]
     Dosage: CYCLE 3
     Route: 042
     Dates: start: 20090914, end: 20090914
  55. DOXORUBICIN HCL [Suspect]
     Dosage: CYCLE 4
     Route: 042
     Dates: start: 20091023, end: 20091023
  56. PREDNISOLONE [Concomitant]
     Route: 048
     Dates: start: 20100913, end: 20100914
  57. PREDNISOLONE [Concomitant]
     Route: 048
     Dates: start: 20090714, end: 20090714
  58. PREDNISOLONE [Concomitant]
     Route: 048
     Dates: start: 20090814, end: 20090814
  59. PREDNISOLONE [Concomitant]
     Route: 048
     Dates: start: 20090914, end: 20090917
  60. PREDNISOLONE [Concomitant]
     Route: 048
     Dates: start: 20090919, end: 20090919
  61. PREDNISOLONE [Concomitant]
     Route: 048
     Dates: start: 20091023, end: 20091026
  62. RESTAMIN [Concomitant]
     Indication: PRODUCT USED FOR UNKNOWN INDICATION
     Route: 061
     Dates: start: 20100323, end: 20100409
  63. POLARAMINE [Concomitant]
     Route: 048
     Dates: start: 20100323, end: 20100409
  64. SAIREI-TO [Concomitant]
     Route: 048
     Dates: start: 20100518
  65. PRIMPERAN TAB [Concomitant]
     Route: 042
     Dates: start: 20101224
  66. BETAMETHASONE [Concomitant]
     Route: 048
     Dates: start: 20101113, end: 20101125
  67. GLYCENON [Concomitant]
     Route: 042
     Dates: start: 20101108, end: 20101224
  68. NEUTROGIN [Concomitant]
     Route: 058
     Dates: start: 20101108, end: 20101110
  69. NEUTROGIN [Concomitant]
     Route: 058
     Dates: start: 20100215, end: 20100218
  70. NEUTROGIN [Concomitant]
     Route: 058
     Dates: start: 20090831, end: 20090901
  71. DOXORUBICIN HCL [Suspect]
     Indication: OVARIAN CANCER RECURRENT
     Dosage: CYCLE 7
     Route: 042
     Dates: start: 20100323, end: 20100323
  72. DOXORUBICIN HCL [Suspect]
     Dosage: CYCLE 1
     Route: 042
     Dates: start: 20090710, end: 20090710
  73. VITAMIN B12 [Concomitant]
     Indication: PRODUCT USED FOR UNKNOWN INDICATION
     Route: 048
  74. JUZENTAIHOTO [Concomitant]
     Indication: PRODUCT USED FOR UNKNOWN INDICATION
     Route: 048
  75. PREDNISOLONE [Concomitant]
     Route: 048
     Dates: start: 20100323, end: 20100326
  76. PREDNISOLONE [Concomitant]
     Route: 048
     Dates: start: 20100816, end: 20100817
  77. PREDNISOLONE [Concomitant]
     Route: 048
     Dates: start: 20090815, end: 20090815
  78. PREDNISOLONE [Concomitant]
     Route: 048
     Dates: start: 20090918, end: 20090918
  79. PREDNISOLONE [Concomitant]
     Route: 048
     Dates: start: 20101021, end: 20101024
  80. KENALOG [Concomitant]
     Indication: PRODUCT USED FOR UNKNOWN INDICATION
     Route: 049
     Dates: start: 20091005, end: 20100518
  81. MAGCOROL P [Concomitant]
     Route: 048
     Dates: start: 20100929, end: 20100929
  82. WATER [Concomitant]
     Route: 048
     Dates: start: 20101122
  83. ESTAZOLAM [Concomitant]
     Route: 048
     Dates: start: 20110207
  84. HEAVY MAGNESIUM OXIDE [Concomitant]
     Indication: PRODUCT USED FOR UNKNOWN INDICATION
     Route: 048
  85. PREDNISOLONE [Concomitant]
     Route: 048
     Dates: start: 20100202, end: 20100202
  86. PREDNISOLONE [Concomitant]
     Route: 048
     Dates: start: 20100129, end: 20100201
  87. LAXOBERON [Concomitant]
     Route: 048
     Dates: start: 20100716
  88. FLUMARIN [Concomitant]
     Route: 042
     Dates: start: 20100714, end: 20100719
  89. GAMOFA [Concomitant]
     Route: 042
     Dates: start: 20101109, end: 20101115
  90. PRIMPERAN TAB [Concomitant]
     Route: 042
     Dates: start: 20100715, end: 20100719
  91. ATARAX [Concomitant]
     Route: 030
     Dates: start: 20110208
  92. NEUTROGIN [Concomitant]
     Route: 058
     Dates: start: 20100510, end: 20100511
  93. NEUTROGIN [Concomitant]
     Route: 058
     Dates: start: 20100416, end: 20100416
  94. NEUTROGIN [Concomitant]
     Route: 058
     Dates: start: 20091110, end: 20091111
  95. DOXORUBICIN HCL [Suspect]
     Dosage: CYCLE 8
     Route: 042
     Dates: start: 20100421, end: 20100421
  96. DOXORUBICIN HCL [Suspect]
     Dosage: CYCLE 9
     Route: 042
     Dates: start: 20100601, end: 20100601
  97. CEFAZOLIN SODIUM [Concomitant]
     Indication: PRODUCT USED FOR UNKNOWN INDICATION
     Route: 048
  98. PANCREAZE [Concomitant]
     Indication: PRODUCT USED FOR UNKNOWN INDICATION
     Route: 048
  99. PREDNISOLONE [Concomitant]
     Route: 048
     Dates: start: 20100601, end: 20100604
  100. PREDNISOLONE [Concomitant]
     Route: 048
     Dates: start: 20100203, end: 20100203
  101. MOTILIUM [Concomitant]
     Route: 054
     Dates: start: 20100103
  102. HALOPERIDOL [Concomitant]
     Route: 048
     Dates: start: 20100120

REACTIONS (4)
  - ARRHYTHMIA [None]
  - PALPITATIONS [None]
  - CYSTITIS [None]
  - WHITE BLOOD CELL COUNT DECREASED [None]
